FAERS Safety Report 7578829-0 (Version None)
Quarter: 2011Q2

REPORT INFORMATION
  Report Type: 
  Country: None (occurrence: None)
  Receive Date: 20110628
  Receipt Date: 20110615
  Transmission Date: 20111010
  Serious: Yes (Hospitalization)
  Sender: FDA-Public Use
  Company Number: DE-UCBSA-033252

PATIENT
  Sex: Male

DRUGS (23)
  1. CARBAMAZEPINE [Concomitant]
  2. LORAZEPAM [Concomitant]
  3. KALINOR [Concomitant]
     Dosage: 1-0-0
  4. KEPPRA [Suspect]
     Dosage: 1000-500-1500 MG
     Dates: start: 20101001
  5. KEPPRA [Suspect]
     Dosage: 500 MG: 3-0-3
  6. PHENYDAN [Concomitant]
  7. NEUROTRAT FORTE [Concomitant]
     Dosage: 2 TABLETS
  8. PREDNISOLONE [Concomitant]
  9. PREDNISOLONE [Concomitant]
     Dosage: 1-0-0
  10. DISTRANEURIN [Concomitant]
     Dosage: 6 CAPSULES
  11. HALDOL [Concomitant]
     Dosage: 40 DROPS
  12. DOMINAL [Concomitant]
     Dosage: 80 MG AT NIGHT
  13. VIMPAT [Concomitant]
  14. CARBAMAZEPINE [Concomitant]
     Dosage: 200-100-200
     Dates: start: 20101001
  15. VALPROATE SODIUM [Concomitant]
  16. KEPPRA [Suspect]
  17. SEROQUEL [Concomitant]
  18. CLONAZEPAM [Concomitant]
  19. KEPPRA [Suspect]
     Indication: EPILEPSY
  20. LUMINAL [Concomitant]
     Dosage: 100
  21. KALINOR [Concomitant]
     Dosage: 3 CAPSULES
  22. KEPPRA [Suspect]
  23. CARBAMAZEPINE [Concomitant]
     Dosage: 200

REACTIONS (10)
  - PARTIAL SEIZURES [None]
  - CARDIOMEGALY [None]
  - CHOLELITHIASIS [None]
  - ARTERIOSCLEROSIS CORONARY ARTERY [None]
  - ECZEMA [None]
  - DIARRHOEA [None]
  - GYNAECOMASTIA [None]
  - STATUS EPILEPTICUS [None]
  - FUNGAL INFECTION [None]
  - SKIN LESION [None]
